FAERS Safety Report 8790441 (Version 1)
Quarter: 2012Q4

REPORT INFORMATION
  Report Type: Spontaneous
  Country: US (occurrence: None)
  Receive Date: 20120911
  Receipt Date: 20120911
  Transmission Date: 20130627
  Serious: Yes (Other)
  Sender: FDA-Public Use
  Company Number: None

PATIENT
  Age: 60 Year
  Sex: Male
  Weight: 108.86 kg

DRUGS (14)
  1. VICTOZA [Suspect]
     Indication: TYPE 2 DIABETES MELLITUS
     Route: 058
     Dates: start: 20120201, end: 20120910
  2. NEBIVOLOL - BYSTOLIC [Concomitant]
  3. METFORMIN [Concomitant]
  4. ESCITALOPRAM - LEXAPRO [Concomitant]
  5. CLOPIDOGREL - PLAVIX [Concomitant]
  6. FUROSEMIDE - LAXIS [Concomitant]
  7. GLIPIZIDE - GLUCOTROL [Concomitant]
  8. SIMVASTATIN - ZOCOR [Concomitant]
  9. LIRAGLUTIDE - VICTOZA [Concomitant]
  10. ONDANSETRON - ZOFRAN [Concomitant]
  11. POTASSIUM [Concomitant]
  12. ZOLPIDEM - AMBIEN CR [Concomitant]
  13. GABAPENTIN  PHN - GRALISER [Concomitant]
  14. ONETOUCH ULTRASOFT LANCETS -ONETOUCH ULTRASOFT 0 LANCET [Concomitant]

REACTIONS (3)
  - Nausea [None]
  - Pancreatic cyst [None]
  - Pancreatic carcinoma [None]
